FAERS Safety Report 15892727 (Version 1)
Quarter: 2019Q1

REPORT INFORMATION
  Report Type: Report from Study
  Country: US (occurrence: US)
  Receive Date: 20190130
  Receipt Date: 20190130
  Transmission Date: 20190417
  Serious: No
  Sender: FDA-Public Use
  Company Number: US-EXELIXIS-CABO-18015402

PATIENT
  Age: 78 Year
  Sex: Male

DRUGS (17)
  1. DOXAZOSIN [Concomitant]
     Active Substance: DOXAZOSIN\DOXAZOSIN MESYLATE
  2. PROSCAR [Concomitant]
     Active Substance: FINASTERIDE
  3. AMLODIPINE [Concomitant]
     Active Substance: AMLODIPINE BESYLATE
  4. LIPITOR [Concomitant]
     Active Substance: ATORVASTATIN CALCIUM
  5. ATIVAN [Concomitant]
     Active Substance: LORAZEPAM
  6. COZAAR [Concomitant]
     Active Substance: LOSARTAN POTASSIUM
  7. SALMON OIL [Concomitant]
     Active Substance: FISH OIL
  8. CABOMETYX [Suspect]
     Active Substance: CABOZANTINIB S-MALATE
     Dosage: 20 MG, UNK
     Dates: start: 2018
  9. VALIUM [Concomitant]
     Active Substance: DIAZEPAM
  10. LUTEIN [Concomitant]
     Active Substance: LUTEIN
  11. COMPAZINE [Concomitant]
     Active Substance: PROCHLORPERAZINE MALEATE
  12. CABOMETYX [Suspect]
     Active Substance: CABOZANTINIB S-MALATE
     Dosage: 60 MG, QD (ON AN EMPTY STOMACH IN THE MORNING)
     Dates: start: 20180826
  13. VITAMIN B [Concomitant]
     Active Substance: VITAMIN B
  14. ZINC. [Concomitant]
     Active Substance: ZINC
  15. CABOMETYX [Suspect]
     Active Substance: CABOZANTINIB S-MALATE
     Indication: METASTATIC RENAL CELL CARCINOMA
     Dosage: 60 MG, QD (ON AN EMPTY STOMACH IN THE MORNING)
     Dates: start: 20180719
  16. LEVOTHYROXINE. [Concomitant]
     Active Substance: LEVOTHYROXINE
  17. C PLUS [Concomitant]

REACTIONS (16)
  - External ear pain [Unknown]
  - Asthenia [Unknown]
  - Dyspepsia [Unknown]
  - Gastrointestinal pain [Unknown]
  - Lethargy [Unknown]
  - Eye disorder [Unknown]
  - Blood blister [Unknown]
  - Flatulence [Unknown]
  - Thyroxine increased [Unknown]
  - Nausea [Unknown]
  - Diarrhoea [Not Recovered/Not Resolved]
  - Mobility decreased [Unknown]
  - Pain in extremity [Unknown]
  - Dysphagia [Unknown]
  - Fatigue [Unknown]
  - Weight decreased [Unknown]

NARRATIVE: CASE EVENT DATE: 2018
